FAERS Safety Report 12343772 (Version 2)
Quarter: 2016Q2

REPORT INFORMATION
  Report Type: Spontaneous
  Country: US (occurrence: US)
  Receive Date: 20160507
  Receipt Date: 20160617
  Transmission Date: 20160815
  Serious: No
  Sender: FDA-Public Use
  Company Number: PHEH2016US010925

PATIENT
  Age: 49 Year
  Sex: Female

DRUGS (1)
  1. GILENYA [Suspect]
     Active Substance: FINGOLIMOD HYDROCHLORIDE
     Indication: MULTIPLE SCLEROSIS
     Dosage: 0.5 MG, QD
     Route: 048
     Dates: start: 20120926

REACTIONS (8)
  - Stress [Unknown]
  - Feeling abnormal [Recovering/Resolving]
  - Asthenia [Recovering/Resolving]
  - Dyspnoea [Recovering/Resolving]
  - Chest discomfort [Recovering/Resolving]
  - Insomnia [Unknown]
  - Product packaging issue [Not Recovered/Not Resolved]
  - Accidental overdose [Unknown]

NARRATIVE: CASE EVENT DATE: 20160428
